FAERS Safety Report 21619556 (Version 1)
Quarter: 2022Q4

REPORT INFORMATION
  Report Type: Spontaneous
  Country: PK (occurrence: PK)
  Receive Date: 20221121
  Receipt Date: 20221121
  Transmission Date: 20230113
  Serious: Yes (Other)
  Sender: FDA-Public Use
  Company Number: PK-PFIZER INC-PV202200033936

PATIENT
  Age: 25 Year
  Sex: Female

DRUGS (7)
  1. ENBREL [Suspect]
     Active Substance: ETANERCEPT
     Indication: Rheumatoid arthritis
     Dosage: 50 MG, WEEKLY
     Route: 058
     Dates: start: 20220519
  2. Rapicort [Concomitant]
     Dosage: 5MG 1+0 2 TABLET AFTER 2 WEEKS, EVERY OTHER DAY
  3. SERT [Concomitant]
     Dosage: 50MG 0+1 AT NIGHT
  4. ETORICOXIB [Concomitant]
     Active Substance: ETORICOXIB
     Dosage: 1+0 IN MORNING
  5. Ruling [Concomitant]
     Dosage: RULING 1+0 MORNING
  6. Zeegap [Concomitant]
     Dosage: 1+1 MORNING AND EVENING
  7. WILGESIC [Concomitant]
     Dosage: 1+1 MORNING AND EVENING

REACTIONS (7)
  - Hypothyroidism [Unknown]
  - Musculoskeletal discomfort [Unknown]
  - Muscle discomfort [Unknown]
  - Back pain [Unknown]
  - Synovial cyst [Unknown]
  - Weight increased [Unknown]
  - Arthralgia [Unknown]
